FAERS Safety Report 7507242 (Version 11)
Quarter: 2012Q4

REPORT INFORMATION
  Report Type: 
  Country: US (occurrence: US)
  Receive Date: 20100729
  Receipt Date: 20121226
  Transmission Date: 20130627
  Serious: Yes (Hospitalization, Congenital Anomaly, Other)
  Sender: FDA-Public Use
  Company Number: US-PFIZER INC-2010092599

PATIENT
  Sex: Female
  Weight: 3 kg

DRUGS (11)
  1. ZOLOFT [Suspect]
     Indication: DEPRESSION
     Dosage: 50 mg, 1x/day
     Route: 064
     Dates: start: 20031119
  2. ZOLOFT [Suspect]
     Dosage: 75 mg, daily
     Route: 064
  3. ZOLOFT [Suspect]
     Dosage: 25 mg, UNK
     Route: 064
     Dates: start: 2006
  4. ZOLOFT [Suspect]
     Dosage: UNK
     Route: 064
     Dates: start: 2004, end: 2008
  5. PRENATAL VITAMINS [Concomitant]
     Dosage: UNK
     Route: 064
  6. MECLOZINE W/PYRIDOXINE [Concomitant]
     Dosage: UNK
     Route: 064
  7. TUMS [Concomitant]
     Dosage: UNK
     Route: 064
  8. ADVIL [Concomitant]
     Dosage: UNK
     Route: 064
  9. TERCONAZOLE [Concomitant]
     Dosage: UNK
     Route: 064
  10. CEPHALEXIN [Concomitant]
     Dosage: UNK
     Route: 064
  11. CLINDAMYCIN [Concomitant]
     Dosage: UNK
     Route: 064

REACTIONS (19)
  - Foetal exposure during pregnancy [Unknown]
  - Oesophageal stenosis [Recovering/Resolving]
  - VACTERL syndrome [Unknown]
  - Bradycardia foetal [Unknown]
  - Patent ductus arteriosus [Unknown]
  - Aortic valve atresia [Unknown]
  - Coarctation of the aorta [Unknown]
  - Anal atresia [Unknown]
  - Tracheo-oesophageal fistula [Unknown]
  - Oesophageal atresia [Unknown]
  - Spine malformation [Unknown]
  - Vesicoureteric reflux [Unknown]
  - Female genital tract fistula [Unknown]
  - Pyelocaliectasis [Unknown]
  - Cardiac murmur [Unknown]
  - Foot deformity [Recovering/Resolving]
  - Bicuspid aortic valve [Unknown]
  - Vascular anomaly [Unknown]
  - Gastrooesophageal reflux disease [Unknown]
